FAERS Safety Report 7675463-9 (Version None)
Quarter: 2011Q3

REPORT INFORMATION
  Report Type: 
  Country: None (occurrence: None)
  Receive Date: 20110810
  Receipt Date: 20110802
  Transmission Date: 20111222
  Serious: Yes (Other)
  Sender: FDA-Public Use
  Company Number: US-US-EMD SERONO, INC.-7067414

PATIENT
  Sex: Male

DRUGS (3)
  1. NIASPAN [Concomitant]
     Indication: BLOOD CHOLESTEROL ABNORMAL
  2. STATIN [Concomitant]
     Indication: BLOOD CHOLESTEROL ABNORMAL
  3. REBIF [Suspect]
     Indication: PRODUCT USED FOR UNKNOWN INDICATION
     Route: 058
     Dates: start: 20100802

REACTIONS (4)
  - ASPARTATE AMINOTRANSFERASE INCREASED [None]
  - INJECTION SITE ERYTHEMA [None]
  - ALANINE AMINOTRANSFERASE INCREASED [None]
  - BENIGN HEPATIC NEOPLASM [None]
